FAERS Safety Report 14416613 (Version 1)
Quarter: 2018Q1

REPORT INFORMATION
  Report Type: Spontaneous
  Country: US (occurrence: US)
  Receive Date: 20180122
  Receipt Date: 20180122
  Transmission Date: 20180509
  Serious: Yes (Life-Threatening, Hospitalization, Other)
  Sender: FDA-Public Use
  Company Number: US-STRIDES ARCOLAB LIMITED-2018SP000436

PATIENT
  Age: 67 Year
  Sex: Male

DRUGS (3)
  1. VANCOMYCIN [Suspect]
     Active Substance: VANCOMYCIN
     Indication: SEPSIS
  2. VANCOMYCIN [Suspect]
     Active Substance: VANCOMYCIN
     Indication: NECROTISING SOFT TISSUE INFECTION
  3. VANCOMYCIN [Suspect]
     Active Substance: VANCOMYCIN
     Indication: STAPHYLOCOCCAL INFECTION
     Dosage: UNK
     Route: 065

REACTIONS (14)
  - Hypercapnia [Recovered/Resolved]
  - Blood urea increased [Recovered/Resolved]
  - Blood creatinine increased [Recovered/Resolved]
  - Rash pruritic [Recovered/Resolved]
  - Drug reaction with eosinophilia and systemic symptoms [Recovered/Resolved]
  - Pyrexia [Recovered/Resolved]
  - Oliguria [Recovered/Resolved]
  - Lethargy [Recovered/Resolved]
  - Drug level increased [Recovered/Resolved]
  - Rash erythematous [Recovered/Resolved]
  - Respiratory failure [Recovered/Resolved]
  - Hypotension [Recovered/Resolved]
  - Multiple organ dysfunction syndrome [Recovered/Resolved]
  - Transaminases increased [Recovered/Resolved]
